FAERS Safety Report 5927490-7 (Version None)
Quarter: 2008Q4

REPORT INFORMATION
  Report Type: 
  Country: None (occurrence: None)
  Receive Date: 20081021
  Receipt Date: 20081021
  Transmission Date: 20090506
  Serious: No
  Sender: FDA-Public Use
  Company Number: None

PATIENT
  Age: 15 Year
  Sex: Female
  Weight: 50.8029 kg

DRUGS (1)
  1. PREVACID [Suspect]
     Indication: STRESS ULCER
     Dosage: 30 MG.
     Dates: start: 20080925, end: 20081020

REACTIONS (1)
  - GLOSSODYNIA [None]
